FAERS Safety Report 9228168 (Version 1)
Quarter: 2013Q2

REPORT INFORMATION
  Report Type: Spontaneous
  Country: MX (occurrence: MX)
  Receive Date: 20130412
  Receipt Date: 20130412
  Transmission Date: 20140414
  Serious: Yes (Death)
  Sender: FDA-Public Use
  Company Number: PHHY2013MX035411

PATIENT
  Age: 79 Year
  Sex: Male

DRUGS (3)
  1. ONBREZ [Suspect]
     Indication: EMPHYSEMA
     Dosage: 300 UG, QD
     Dates: start: 201012, end: 20130316
  2. DIOVAN [Suspect]
     Indication: BLOOD PRESSURE
     Dosage: 1 DF, DAILY
  3. SEKRETOVIT [Concomitant]
     Indication: EMPHYSEMA
     Dosage: 1 DF, DAILY
     Dates: start: 201012

REACTIONS (3)
  - Respiratory arrest [Fatal]
  - Concomitant disease progression [Fatal]
  - Off label use [Unknown]
